FAERS Safety Report 19430215 (Version 1)
Quarter: 2021Q2

REPORT INFORMATION
  Report Type: Spontaneous
  Country: US (occurrence: US)
  Receive Date: 20210617
  Receipt Date: 20210617
  Transmission Date: 20210717
  Serious: Yes (Hospitalization, Other)
  Sender: FDA-Public Use
  Company Number: US-JNJFOC-20210621958

PATIENT
  Age: 37 Year
  Sex: Female

DRUGS (6)
  1. LASIX [Concomitant]
     Active Substance: FUROSEMIDE
     Dosage: 20 MG DAILY
  2. VELETRI [Suspect]
     Active Substance: EPOPROSTENOL
     Indication: VENTRICULAR SEPTAL DEFECT
     Route: 042
     Dates: start: 201912
  3. SELEXIPAG [Suspect]
     Active Substance: SELEXIPAG
     Indication: PULMONARY HYPERTENSION
     Route: 065
  4. TADALAFIL. [Suspect]
     Active Substance: TADALAFIL
     Indication: PULMONARY HYPERTENSION
     Route: 065
     Dates: start: 201912
  5. SELEXIPAG [Suspect]
     Active Substance: SELEXIPAG
     Route: 065
  6. SPIRONOLACTONE. [Concomitant]
     Active Substance: SPIRONOLACTONE
     Dosage: 50 MG DAILY

REACTIONS (4)
  - Application site rash [Unknown]
  - Headache [Recovering/Resolving]
  - Pulmonary oedema [Unknown]
  - Myalgia [Recovering/Resolving]

NARRATIVE: CASE EVENT DATE: 202002
